FAERS Safety Report 7242181-0 (Version None)
Quarter: 2011Q1

REPORT INFORMATION
  Report Type: 
  Country: None (occurrence: None)
  Receive Date: 20110124
  Receipt Date: 20101210
  Transmission Date: 20110831
  Serious: No
  Sender: FDA-Public Use
  Company Number: PHHY2010NL79005

PATIENT
  Sex: Female
  Weight: 57 kg

DRUGS (14)
  1. COLCHICINE [Concomitant]
     Indication: GOUT
     Dosage: 0.5MG 2DD
     Route: 048
  2. RISEDRONIC ACID SODIUM [Concomitant]
     Indication: OSTEOPOROSIS
     Dosage: 35 MG 1X/WEEK
  3. TASIGNA [Suspect]
     Dosage: 1DD 200 MG
     Route: 048
  4. NEXIUM [Concomitant]
     Dosage: 20 MG, UNK
  5. VENTOLIN [Concomitant]
     Indication: CHRONIC OBSTRUCTIVE PULMONARY DISEASE
     Dosage: 100 MCG
  6. ESOMEPRAZOLE [Concomitant]
     Indication: GASTRITIS
     Dosage: 20MG 1DD
  7. TASIGNA [Suspect]
     Dosage: 2DD 200 MG
     Route: 048
     Dates: start: 20101108
  8. LEVOTHYROXINE SODIUM [Concomitant]
     Indication: HYPOTHYROIDISM
     Dosage: 75MCG 1DD
  9. TASIGNA [Suspect]
     Dosage: 1DD 400MG (IN THE MORNING)
  10. PREDNISONE [Concomitant]
     Dosage: 15MG 1D
  11. PARACETAMOL [Concomitant]
     Indication: GOUT
  12. PREDNISONE [Concomitant]
     Indication: GOUT
     Dosage: 10 MG, UNK
  13. PARACETAMOL [Concomitant]
     Indication: PAIN
     Dosage: 500MG
  14. CALCIMAGON-D3 [Concomitant]
     Indication: OSTEOPOROSIS
     Dosage: 500/400 1DD

REACTIONS (2)
  - ABDOMINAL PAIN [None]
  - INCORRECT DOSE ADMINISTERED [None]
